FAERS Safety Report 9579838 (Version 1)
Quarter: 2013Q4

REPORT INFORMATION
  Report Type: Spontaneous
  Country: US (occurrence: US)
  Receive Date: 20131002
  Receipt Date: 20131002
  Transmission Date: 20140711
  Serious: No
  Sender: FDA-Public Use
  Company Number: US-009507513-1309USA014679

PATIENT
  Age: 55 Year
  Sex: Female

DRUGS (4)
  1. VICTRELIS [Suspect]
     Indication: HEPATITIS C
     Dosage: 800 MG, TID
     Route: 048
     Dates: start: 201309
  2. REBETOL [Suspect]
     Route: 048
  3. PEGASYS [Suspect]
  4. IRON (UNSPECIFIED) [Concomitant]

REACTIONS (1)
  - Fatigue [Recovering/Resolving]
